FAERS Safety Report 4938435-0 (Version None)
Quarter: 2006Q1

REPORT INFORMATION
  Report Type: 
  Country: None (occurrence: None)
  Receive Date: 20060308
  Receipt Date: 20060308
  Transmission Date: 20060701
  Serious: Yes (Hospitalization, Other)
  Sender: FDA-Public Use
  Company Number: None

PATIENT
  Sex: Male
  Weight: 97.9 kg

DRUGS (3)
  1. DOXORUBICIN HCL [Suspect]
     Indication: HODGKIN'S DISEASE
     Dosage: 55 MG
     Dates: start: 20060210, end: 20060210
  2. GEMCITABINE [Suspect]
     Dosage: 1760 MG
     Dates: start: 20060210, end: 20060210
  3. VINBLASTINE SULFATE [Suspect]
     Dosage: 13.2 MG
     Dates: start: 20060210, end: 20060210

REACTIONS (3)
  - FEBRILE NEUTROPENIA [None]
  - ILEUS [None]
  - SHOULDER PAIN [None]
